FAERS Safety Report 6395536-0 (Version None)
Quarter: 2009Q4

REPORT INFORMATION
  Report Type: 
  Country: None (occurrence: None)
  Receive Date: 20091009
  Receipt Date: 20090929
  Transmission Date: 20100525
  Serious: No
  Sender: FDA-Public Use
  Company Number: US-BAYER-200823846NA

PATIENT

DRUGS (2)
  1. MAGNEVIST [Suspect]
     Indication: DRUG USE FOR UNKNOWN INDICATION
     Dosage: UNIT DOSE: 10 ML
     Dates: start: 20070214, end: 20070214
  2. ULTRAVIST 150 [Suspect]
     Indication: ARTHROGRAM

REACTIONS (2)
  - PARAESTHESIA ORAL [None]
  - URTICARIA [None]
